FAERS Safety Report 16137134 (Version 4)
Quarter: 2019Q3

REPORT INFORMATION
  Report Type: Report from Study
  Country: US (occurrence: US)
  Receive Date: 20190329
  Receipt Date: 20190807
  Transmission Date: 20191004
  Serious: Yes (Other)
  Sender: FDA-Public Use
  Company Number: PHHY2019US070196

PATIENT
  Age: 80 Year
  Sex: Male
  Weight: 71 kg

DRUGS (5)
  1. FLUDARABINE [Concomitant]
     Active Substance: FLUDARABINE PHOSPHATE
     Indication: CHEMOTHERAPY
     Dosage: UNK
     Route: 065
  2. DIPHENHYDRAMINE. [Concomitant]
     Active Substance: DIPHENHYDRAMINE
     Indication: PROPHYLAXIS
     Dosage: 12.5 MG, UNK
     Route: 065
     Dates: start: 20180723, end: 20180723
  3. KYMRIAH [Suspect]
     Active Substance: TISAGENLECLEUCEL
     Indication: DIFFUSE LARGE B-CELL LYMPHOMA REFRACTORY
     Dosage: 1 BAG, ONCE/SINGLE
     Route: 042
     Dates: start: 20180723
  4. CYCLOPHOSPHAMIDE. [Concomitant]
     Active Substance: CYCLOPHOSPHAMIDE
     Indication: CHEMOTHERAPY
     Dosage: UNK
     Route: 065
  5. ACETAMINOPHEN. [Concomitant]
     Active Substance: ACETAMINOPHEN
     Indication: PROPHYLAXIS
     Dosage: 650 MG, UNK
     Route: 048
     Dates: start: 20180723, end: 20180723

REACTIONS (6)
  - Neutrophil count decreased [Recovered/Resolved]
  - Viral upper respiratory tract infection [Unknown]
  - Diffuse large B-cell lymphoma recurrent [Unknown]
  - Viral sinusitis [Unknown]
  - Cytokine release syndrome [Recovered/Resolved]
  - Rhinovirus infection [Unknown]

NARRATIVE: CASE EVENT DATE: 20180823
